FAERS Safety Report 23198543 (Version 1)
Quarter: 2023Q4

REPORT INFORMATION
  Report Type: Spontaneous
  Country: US (occurrence: None)
  Receive Date: 20231117
  Receipt Date: 20231117
  Transmission Date: 20240110
  Serious: No
  Sender: FDA-Public Use
  Company Number: None

PATIENT
  Age: 68 Year
  Sex: Female
  Weight: 90.72 kg

DRUGS (4)
  1. TAMSULOSIN [Suspect]
     Active Substance: TAMSULOSIN
     Indication: Postoperative care
     Dosage: FREQUENCY : DAILY;?
     Route: 048
     Dates: start: 20231025, end: 20231102
  2. TAMSULOSIN [Suspect]
     Active Substance: TAMSULOSIN
     Indication: Renal impairment
  3. TAMSULOSIN [Suspect]
     Active Substance: TAMSULOSIN
     Indication: Renal stone removal
  4. TAMSULOSIN [Suspect]
     Active Substance: TAMSULOSIN
     Indication: Stent removal

REACTIONS (9)
  - Vertigo [None]
  - Cough [None]
  - Lip pain [None]
  - Headache [None]
  - Fatigue [None]
  - Palpitations [None]
  - Palpitations [None]
  - Diaphragmalgia [None]
  - Fear [None]

NARRATIVE: CASE EVENT DATE: 20231101
